FAERS Safety Report 4642444-9 (Version None)
Quarter: 2005Q2

REPORT INFORMATION
  Report Type: 
  Country: None (occurrence: None)
  Receive Date: 20050422
  Receipt Date: 20050322
  Transmission Date: 20051028
  Serious: Yes (Hospitalization)
  Sender: FDA-Public Use
  Company Number: JP-ROCHE-399856

PATIENT
  Age: 63 Year
  Sex: Female

DRUGS (16)
  1. TAMIFLU [Suspect]
     Route: 048
     Dates: start: 20050309, end: 20050311
  2. THEO-DUR [Suspect]
     Indication: BRONCHITIS
     Route: 048
     Dates: start: 20050311, end: 20050312
  3. PELEX [Suspect]
     Indication: BRONCHITIS
     Route: 048
     Dates: start: 20050311, end: 20050312
  4. BANAN [Suspect]
     Indication: BRONCHITIS
     Route: 048
     Dates: start: 20050311, end: 20050312
  5. ANTIEPILEPTIC [Concomitant]
  6. CALONAL [Concomitant]
     Indication: DRUG USE FOR UNKNOWN INDICATION
     Route: 048
     Dates: start: 20050309, end: 20050309
  7. ASPIRIN [Concomitant]
     Indication: DRUG USE FOR UNKNOWN INDICATION
     Route: 048
  8. DEPAKENE [Concomitant]
     Indication: DRUG USE FOR UNKNOWN INDICATION
     Route: 048
  9. APLACE [Concomitant]
     Indication: DRUG USE FOR UNKNOWN INDICATION
     Route: 048
  10. ROCORNAL [Concomitant]
     Indication: DRUG USE FOR UNKNOWN INDICATION
     Route: 048
  11. CALTAN [Concomitant]
     Indication: DRUG USE FOR UNKNOWN INDICATION
     Route: 048
  12. LENDORM [Concomitant]
     Indication: DRUG USE FOR UNKNOWN INDICATION
     Route: 048
  13. SOLANTAL [Concomitant]
     Indication: DRUG USE FOR UNKNOWN INDICATION
     Route: 048
     Dates: end: 20050312
  14. HUSCODE [Concomitant]
     Indication: DRUG USE FOR UNKNOWN INDICATION
     Route: 048
     Dates: start: 20050305, end: 20050312
  15. ALFAROL [Concomitant]
     Indication: DRUG USE FOR UNKNOWN INDICATION
     Route: 048
  16. GASMOTIN [Concomitant]
     Indication: DRUG USE FOR UNKNOWN INDICATION
     Route: 048

REACTIONS (2)
  - CONVULSION [None]
  - INCORRECT DOSE ADMINISTERED [None]
